FAERS Safety Report 13356352 (Version 4)
Quarter: 2017Q2

REPORT INFORMATION
  Report Type: Report from Study
  Country: CN (occurrence: CN)
  Receive Date: 20170321
  Receipt Date: 20170613
  Transmission Date: 20170830
  Serious: Yes (Hospitalization, Other)
  Sender: FDA-Public Use
  Company Number: CN-GLAXOSMITHKLINE-CN2017036569

PATIENT
  Age: 65 Year
  Sex: Male
  Weight: 46.5 kg

DRUGS (4)
  1. COMPOUND AMINO ACID INJECTION [Concomitant]
     Indication: ILL-DEFINED DISORDER
     Dosage: 250 ML, QD
     Route: 042
     Dates: start: 20170314, end: 20170317
  2. INVERT SUGAR AND ELECTROLYTES INJECTION [Concomitant]
     Indication: SUPPLEMENTATION THERAPY
     Dosage: 250 ML, QD
     Route: 042
     Dates: start: 20170314, end: 20170316
  3. UMECLIDINIUM BROMIDE [Suspect]
     Active Substance: UMECLIDINIUM BROMIDE
     Indication: CHRONIC OBSTRUCTIVE PULMONARY DISEASE
     Dosage: 62.5 UG, QD
     Route: 055
     Dates: start: 20161121, end: 20170314
  4. KETOTIFEN FUMARATE TABLETS [Concomitant]
     Indication: CHRONIC OBSTRUCTIVE PULMONARY DISEASE
     Dosage: 1 MG, UNK
     Route: 048
     Dates: start: 20170319, end: 20170321

REACTIONS (2)
  - Pneumonia [Recovered/Resolved]
  - Chronic obstructive pulmonary disease [Recovered/Resolved]

NARRATIVE: CASE EVENT DATE: 20170309
